FAERS Safety Report 4311114-9 (Version None)
Quarter: 2004Q1

REPORT INFORMATION
  Report Type: 
  Country: None (occurrence: None)
  Receive Date: 20040302
  Receipt Date: 20040226
  Transmission Date: 20041129
  Serious: Yes (Hospitalization)
  Sender: FDA-Public Use
  Company Number: CIP04000271

PATIENT
  Age: 88 Year
  Sex: Male
  Weight: 62.1 kg

DRUGS (5)
  1. ACTONEL [Suspect]
     Indication: OSTEOPOROSIS
     Dosage: 35 MG ONCE WEEKLY, ORAL
     Route: 048
     Dates: start: 20020918, end: 20040113
  2. ACETYLSALICYLIC ACID SRT [Concomitant]
  3. TUMS (MAGNESIUM TRISILICATE, MAGNESIUM CARBONATE) [Concomitant]
  4. MULTIVIT (VITAMINS NOS) [Concomitant]
  5. ZOCOR [Concomitant]

REACTIONS (8)
  - CHEST DISCOMFORT [None]
  - CHEST PAIN [None]
  - COUGH [None]
  - DYSPHAGIA [None]
  - NASAL SINUS DRAINAGE [None]
  - OESOPHAGEAL STENOSIS [None]
  - OESOPHAGITIS [None]
  - WEIGHT DECREASED [None]
